FAERS Safety Report 5962514-2 (Version None)
Quarter: 2008Q4

REPORT INFORMATION
  Report Type: 
  Country: None (occurrence: None)
  Receive Date: 20081121
  Receipt Date: 20081110
  Transmission Date: 20090506
  Serious: Yes (Hospitalization, Other)
  Sender: FDA-Public Use
  Company Number: US-PFIZER INC-2008095165

PATIENT
  Sex: Female

DRUGS (5)
  1. CHANTIX [Suspect]
     Indication: SMOKING CESSATION THERAPY
     Dates: start: 20070701, end: 20070101
  2. SEROQUEL [Suspect]
  3. MIRAPEX [Suspect]
  4. XANAX [Concomitant]
  5. PROZAC [Concomitant]

REACTIONS (10)
  - ANXIETY [None]
  - DEPRESSION [None]
  - ECONOMIC PROBLEM [None]
  - EMOTIONAL DISTRESS [None]
  - OEDEMA PERIPHERAL [None]
  - OVERDOSE [None]
  - PAIN [None]
  - PULMONARY EMBOLISM [None]
  - SUICIDAL IDEATION [None]
  - SUICIDE ATTEMPT [None]
